FAERS Safety Report 4604997-6 (Version None)
Quarter: 2005Q1

REPORT INFORMATION
  Report Type: 
  Country: None (occurrence: None)
  Receive Date: 20050310
  Receipt Date: 20050310
  Transmission Date: 20050727
  Serious: Yes (Hospitalization)
  Sender: FDA-Public Use
  Company Number: None

PATIENT
  Age: 41 Year
  Sex: Female
  Weight: 90.7194 kg

DRUGS (7)
  1. TAXOTERE [Suspect]
     Indication: BREAST CANCER
     Dosage: 100 MG /M2 IV Q 2 WEEKS
     Route: 042
     Dates: start: 20041201, end: 20050101
  2. DECADRON [Concomitant]
  3. NEULASTA [Concomitant]
  4. SALINE EYE DROPS [Concomitant]
  5. ADVIL [Concomitant]
  6. M.V.I. [Concomitant]
  7. ZADITOR EYE DROPS [Concomitant]

REACTIONS (2)
  - POST PROCEDURAL HAEMATOMA [None]
  - POST PROCEDURAL HAEMORRHAGE [None]
